FAERS Safety Report 10440537 (Version 2)
Quarter: 2014Q4

REPORT INFORMATION
  Report Type: Other
  Country: US (occurrence: US)
  Receive Date: 20140909
  Receipt Date: 20141111
  Transmission Date: 20150528
  Serious: Yes (Hospitalization, Other)
  Sender: FDA-Public Use
  Company Number: US-SHIRE-US201405480

PATIENT
  Age: 20 Year
  Sex: Female
  Weight: 58.96 kg

DRUGS (21)
  1. MESALAMINE. [Concomitant]
     Active Substance: MESALAMINE
     Indication: PRODUCT USED FOR UNKNOWN INDICATION
     Dosage: 4 G, 1X/DAY:QD (AT BEDTIME)
     Route: 054
  2. PENTASA [Concomitant]
     Active Substance: MESALAMINE
     Dosage: 1000 MG (TWO 500 MG), 3X/DAY:TID
     Route: 048
  3. VITAMIN D                          /00107901/ [Concomitant]
     Active Substance: ERGOCALCIFEROL
     Indication: PRODUCT USED FOR UNKNOWN INDICATION
     Dosage: 1000 IU, OTHER (TWICE WEEKLY)
     Route: 065
  4. LIALDA [Suspect]
     Active Substance: MESALAMINE
     Dosage: UNK
  5. PROBIOTIC                          /06395501/ [Concomitant]
     Indication: PRODUCT USED FOR UNKNOWN INDICATION
     Dosage: UNK, 1X/DAY:QD
     Route: 065
  6. PREDNISONE. [Concomitant]
     Active Substance: PREDNISONE
     Indication: PRODUCT USED FOR UNKNOWN INDICATION
     Dosage: 40 MG (TWO 20 MG), 1X/DAY:QD
     Route: 048
  7. UCERIS [Concomitant]
     Active Substance: BUDESONIDE
     Indication: PRODUCT USED FOR UNKNOWN INDICATION
     Dosage: 9 MG, 1X/DAY:QD
     Route: 048
  8. CANASA [Concomitant]
     Active Substance: MESALAMINE
     Indication: PRODUCT USED FOR UNKNOWN INDICATION
     Dosage: 1000 MG, 1X/DAY:QD (AT BEDTIME)
     Route: 054
  9. YAZ [Concomitant]
     Active Substance: DROSPIRENONE\ETHINYL ESTRADIOL
     Indication: PRODUCT USED FOR UNKNOWN INDICATION
     Dosage: 3 - 0.02 MG, 1X/DAY:QD
     Route: 065
  10. HUMIRA [Concomitant]
     Active Substance: ADALIMUMAB
     Dosage: 80 MG, OTHER (DAY 15)
     Route: 065
  11. REMICADE [Concomitant]
     Active Substance: INFLIXIMAB
     Indication: PRODUCT USED FOR UNKNOWN INDICATION
     Dosage: 100 MG, OTHER (EVERY 8 WEEKS)
     Route: 065
  12. L-GLUTAMINE                        /00503401/ [Concomitant]
     Active Substance: GLUTAMINE
     Indication: PRODUCT USED FOR UNKNOWN INDICATION
     Dosage: UNK, 1X/DAY:QD
     Route: 065
  13. PENTASA [Concomitant]
     Active Substance: MESALAMINE
     Indication: PRODUCT USED FOR UNKNOWN INDICATION
     Dosage: 1500 MG (THREE 500 MG), 2X/DAY:BID
     Route: 065
  14. PREDNISONE. [Concomitant]
     Active Substance: PREDNISONE
     Dosage: 5 MG, OTHER (TAPER AS PER DR. MIAN)
     Route: 065
  15. LIALDA [Suspect]
     Active Substance: MESALAMINE
     Indication: COLITIS ULCERATIVE
     Dosage: 4.8 MG (FOUR 1.2 G), 1X/DAY:QD
     Route: 048
     Dates: start: 20140707, end: 20140814
  16. LIALDA [Suspect]
     Active Substance: MESALAMINE
     Dosage: 1.2 G, 2X/DAY:BID
     Route: 048
     Dates: start: 20140707, end: 20140814
  17. HUMIRA [Concomitant]
     Active Substance: ADALIMUMAB
     Indication: PRODUCT USED FOR UNKNOWN INDICATION
     Dosage: 160 MG, OTHER (DAY 1)
     Route: 065
  18. HUMIRA [Concomitant]
     Active Substance: ADALIMUMAB
     Dosage: 40 MG, 1X/2WKS (EVERY OTHER WEEK)
     Route: 058
  19. ASACOL HD [Concomitant]
     Active Substance: MESALAMINE
     Indication: PRODUCT USED FOR UNKNOWN INDICATION
     Dosage: 1600 MG (TWO 800 MG), 2X/DAY:BID
     Route: 048
  20. DIGESTIVE ENZYMES                  /02161301/ [Concomitant]
     Indication: PRODUCT USED FOR UNKNOWN INDICATION
     Dosage: UNK, OTHER (WITH MEALS)
     Route: 065
  21. PRENATAL VITAMINS                  /07499601/ [Concomitant]
     Indication: PRODUCT USED FOR UNKNOWN INDICATION
     Dosage: UNK, 1X/DAY:QD
     Route: 065

REACTIONS (4)
  - Condition aggravated [Recovering/Resolving]
  - Inappropriate schedule of drug administration [Recovered/Resolved]
  - Incorrect dose administered [Recovered/Resolved]
  - Diarrhoea haemorrhagic [Recovering/Resolving]

NARRATIVE: CASE EVENT DATE: 20140707
